FAERS Safety Report 18517382 (Version 1)
Quarter: 2020Q4

REPORT INFORMATION
  Report Type: Spontaneous
  Country: US (occurrence: US)
  Receive Date: 20201118
  Receipt Date: 20201118
  Transmission Date: 20210114
  Serious: Yes (Death)
  Sender: FDA-Public Use
  Company Number: None

PATIENT
  Age: 65 Year
  Sex: Male

DRUGS (1)
  1. REGULAR INSULIN [Suspect]
     Active Substance: INSULIN NOS

REACTIONS (9)
  - Hypoglycaemia [None]
  - Rhabdomyolysis [None]
  - Hypotension [None]
  - Multiple organ dysfunction syndrome [None]
  - Acute kidney injury [None]
  - Pneumonia aspiration [None]
  - Sepsis [None]
  - Cardiac arrest [None]
  - Blood potassium increased [None]

NARRATIVE: CASE EVENT DATE: 20200721
